FAERS Safety Report 19487818 (Version 1)
Quarter: 2021Q3

REPORT INFORMATION
  Report Type: Spontaneous
  Country: US (occurrence: US)
  Receive Date: 20210702
  Receipt Date: 20210702
  Transmission Date: 20211014
  Serious: No
  Sender: FDA-Public Use
  Company Number: US-ASTRAZENECA-2021A494885

PATIENT
  Age: 874 Month
  Sex: Female

DRUGS (2)
  1. KOMBIGLYZE XR [Suspect]
     Active Substance: METFORMIN HYDROCHLORIDE\SAXAGLIPTIN HYDROCHLORIDE
     Indication: DIABETES MELLITUS
     Dosage: 2.5/1000 MG, 1 TABLET, TWICE A DAY,
     Route: 048
     Dates: start: 2006
  2. ALOGLIPTIN/METFORMIN [Suspect]
     Active Substance: ALOGLIPTIN BENZOATE\METFORMIN HYDROCHLORIDE
     Dosage: 12.5/1000
     Route: 048

REACTIONS (7)
  - Diplopia [Unknown]
  - Visual impairment [Unknown]
  - Diabetes mellitus inadequate control [Unknown]
  - Illness [Unknown]
  - Product dose omission issue [Unknown]
  - Vision blurred [Unknown]
  - Insurance issue [Unknown]

NARRATIVE: CASE EVENT DATE: 202104
